FAERS Safety Report 14338668 (Version 1)
Quarter: 2017Q4

REPORT INFORMATION
  Report Type: Spontaneous
  Country: NL (occurrence: NL)
  Receive Date: 20171229
  Receipt Date: 20171229
  Transmission Date: 20180321
  Serious: Yes (Other)
  Sender: FDA-Public Use
  Company Number: NL-ASPEN-GLO2017NL003729

PATIENT
  Age: 55 Year
  Sex: Female
  Weight: 64 kg

DRUGS (3)
  1. MERCAPTOPURINE. [Suspect]
     Active Substance: MERCAPTOPURINE
     Indication: CROHN^S DISEASE
     Dosage: 50 MG, QD
     Route: 065
  2. TIOGUANINE [Suspect]
     Active Substance: THIOGUANINE ANHYDROUS
     Indication: CROHN^S DISEASE
     Dosage: UNK
     Route: 065
  3. MERCAPTOPURINE. [Suspect]
     Active Substance: MERCAPTOPURINE
     Indication: INFLAMMATORY BOWEL DISEASE

REACTIONS (4)
  - Leukopenia [Recovered/Resolved]
  - Aspartate aminotransferase increased [Unknown]
  - Off label use [Unknown]
  - Alanine aminotransferase increased [Unknown]
